FAERS Safety Report 15714964 (Version 1)
Quarter: 2018Q4

REPORT INFORMATION
  Report Type: Spontaneous
  Country: US (occurrence: US)
  Receive Date: 20181212
  Receipt Date: 20181212
  Transmission Date: 20190205
  Serious: Yes (Other)
  Sender: FDA-Public Use
  Company Number: PHHY2018US175587

PATIENT
  Age: 44 Year
  Sex: Female

DRUGS (8)
  1. PREDNISONE. [Suspect]
     Active Substance: PREDNISONE
     Indication: IMMUNOSUPPRESSANT DRUG THERAPY
     Dosage: 30 MG, QD
     Route: 048
  2. LEFLUNOMIDE. [Suspect]
     Active Substance: LEFLUNOMIDE
     Indication: IMMUNOSUPPRESSANT DRUG THERAPY
  3. PREDNISONE. [Suspect]
     Active Substance: PREDNISONE
     Dosage: 5 MG, Q2W
     Route: 048
  4. ADALIMUMAB [Suspect]
     Active Substance: ADALIMUMAB
     Indication: JUVENILE PSORIATIC ARTHRITIS
     Dosage: 40 MG, Q2W
     Route: 058
  5. METHOTREXATE. [Suspect]
     Active Substance: METHOTREXATE
     Indication: JUVENILE PSORIATIC ARTHRITIS
     Route: 065
  6. ADALIMUMAB [Suspect]
     Active Substance: ADALIMUMAB
     Dosage: 40 MG, (EVERY 10 DAYS)
     Route: 058
  7. PREDNISONE. [Suspect]
     Active Substance: PREDNISONE
     Indication: JUVENILE PSORIATIC ARTHRITIS
     Dosage: 10 MG, QD
     Route: 048
  8. LEFLUNOMIDE. [Suspect]
     Active Substance: LEFLUNOMIDE
     Indication: JUVENILE PSORIATIC ARTHRITIS
     Route: 065

REACTIONS (6)
  - Cystoid macular oedema [Recovering/Resolving]
  - Drug intolerance [Unknown]
  - Drug ineffective [Unknown]
  - Treatment failure [Unknown]
  - Photosensitivity reaction [Unknown]
  - Uveitis [Unknown]
